FAERS Safety Report 4930927-3 (Version None)
Quarter: 2006Q1

REPORT INFORMATION
  Report Type: 
  Country: None (occurrence: None)
  Receive Date: 20060227
  Receipt Date: 20060214
  Transmission Date: 20060701
  Serious: Yes (Hospitalization)
  Sender: FDA-Public Use
  Company Number: MEDI-0004172

PATIENT
  Age: 8 Month
  Sex: Male
  Weight: 7.3 kg

DRUGS (7)
  1. SYNAGIS [Suspect]
     Indication: ANTIVIRAL PROPHYLAXIS
     Dosage: 110 MG, 1 IN 30 D, INTRAMUSCULAR; 1 IN 30 D, INTRAMUSCULAR
     Route: 030
     Dates: start: 20051110, end: 20051110
  2. SYNAGIS [Suspect]
     Indication: ANTIVIRAL PROPHYLAXIS
     Dosage: 110 MG, 1 IN 30 D, INTRAMUSCULAR; 1 IN 30 D, INTRAMUSCULAR
     Route: 030
     Dates: start: 20051223
  3. SYNAGIS [Suspect]
     Indication: ANTIVIRAL PROPHYLAXIS
     Dosage: 110 MG, 1 IN 30 D, INTRAMUSCULAR; 1 IN 30 D, INTRAMUSCULAR
     Route: 030
     Dates: start: 20060127
  4. PULMICORT [Concomitant]
  5. ALBUTEROL [Concomitant]
  6. CLINDAMYCIN [Concomitant]
  7. PREVACID [Concomitant]

REACTIONS (10)
  - ASTHENIA [None]
  - ATELECTASIS [None]
  - BRONCHIAL OBSTRUCTION [None]
  - DERMATITIS DIAPER [None]
  - DIARRHOEA [None]
  - EYE DISCHARGE [None]
  - LYMPHOCYTE MORPHOLOGY ABNORMAL [None]
  - PNEUMONIA [None]
  - PURULENCE [None]
  - RESPIRATORY FAILURE [None]
